FAERS Safety Report 18347076 (Version 3)
Quarter: 2021Q1

REPORT INFORMATION
  Report Type: Spontaneous
  Country: FR (occurrence: FR)
  Receive Date: 20201005
  Receipt Date: 20210225
  Transmission Date: 20210419
  Serious: Yes (Death, Other)
  Sender: FDA-Public Use
  Company Number: FR-BEH-2020122997

PATIENT
  Age: 74 Year
  Sex: Male
  Weight: 74 kg

DRUGS (19)
  1. VENETOCLAX. [Suspect]
     Active Substance: VENETOCLAX
     Dosage: 100 MILLIGRAM, QD
     Route: 048
     Dates: start: 20191112, end: 20191118
  2. VENETOCLAX. [Suspect]
     Active Substance: VENETOCLAX
     Indication: CHRONIC LYMPHOCYTIC LEUKAEMIA
     Dosage: 200 MILLIGRAM, QD
     Route: 048
     Dates: start: 20191119, end: 20191125
  3. PRIVIGEN [Concomitant]
     Active Substance: HUMAN IMMUNOGLOBULIN G
     Indication: HYPOGAMMAGLOBULINAEMIA
     Route: 065
     Dates: start: 20191028, end: 20191126
  4. PRAVASTATINE [Concomitant]
     Active Substance: PRAVASTATIN
     Indication: HYPERCHOLESTEROLAEMIA
     Route: 065
     Dates: start: 2018
  5. DOLIPRANE [Concomitant]
     Active Substance: ACETAMINOPHEN
     Indication: PANCREATITIS ACUTE
     Route: 065
     Dates: start: 20200514, end: 20200514
  6. HIZENTRA [Suspect]
     Active Substance: HUMAN IMMUNOGLOBULIN G
     Indication: HYPOGAMMAGLOBULINAEMIA
     Dosage: UNK
     Route: 065
     Dates: start: 20191203
  7. VENETOCLAX. [Suspect]
     Active Substance: VENETOCLAX
     Dosage: 20 MILLIGRAM, QD
     Route: 048
     Dates: start: 20191028, end: 20191104
  8. MORPHINE [Concomitant]
     Active Substance: MORPHINE
     Indication: PANCREATITIS ACUTE
     Route: 065
     Dates: start: 20200514, end: 20200515
  9. VALACICLOVIR [Concomitant]
     Active Substance: VALACYCLOVIR HYDROCHLORIDE
     Indication: ANTIVIRAL PROPHYLAXIS
     Route: 048
     Dates: start: 20191118
  10. VENETOCLAX. [Suspect]
     Active Substance: VENETOCLAX
     Dosage: 50 MILLIGRAM, QD
     Route: 048
     Dates: start: 20191105, end: 20191111
  11. VENETOCLAX. [Suspect]
     Active Substance: VENETOCLAX
     Dosage: 400 MILLIGRAM, QD
     Route: 048
     Dates: start: 20191126
  12. OXYNORMORO [Concomitant]
     Active Substance: OXYCODONE HYDROCHLORIDE
     Indication: PANCREATITIS ACUTE
     Route: 065
     Dates: start: 20200514, end: 20200514
  13. DIPROSONE [BETAMETHASONE DIPROPIONATE;BETAMETHASONE SODIUM PHOSPHATE] [Concomitant]
     Indication: ERYTHEMA
     Route: 065
     Dates: start: 20200124, end: 20200124
  14. AESCULUS HIPPOCASTANUM [Concomitant]
     Active Substance: HORSE CHESTNUT
     Indication: HAEMORRHOIDS
     Route: 065
     Dates: start: 20200124, end: 20200224
  15. ALLOPURINOL. [Concomitant]
     Active Substance: ALLOPURINOL
     Indication: GOUT
  16. BIPRETERAX [INDAPAMIDE;PERINDOPRIL ERBUMINE] [Concomitant]
     Active Substance: INDAPAMIDE\PERINDOPRIL ERBUMINE
     Indication: HYPERTENSION
     Route: 065
     Dates: start: 2018
  17. IBRUTINIB [Suspect]
     Active Substance: IBRUTINIB
     Indication: CHRONIC LYMPHOCYTIC LEUKAEMIA
     Dosage: UNK
     Route: 065
     Dates: start: 20150324, end: 20191126
  18. ALLOPURINOL. [Concomitant]
     Active Substance: ALLOPURINOL
     Indication: PROPHYLAXIS
     Dosage: UNK
     Route: 065
     Dates: start: 2016
  19. AMLOR [Concomitant]
     Active Substance: AMLODIPINE BESYLATE
     Indication: HYPERTENSION
     Route: 065
     Dates: start: 2019

REACTIONS (6)
  - Skin plaque [Recovered/Resolved]
  - Dermatitis allergic [Recovered/Resolved]
  - Pancreatitis acute [Fatal]
  - Contraindicated product administered [Fatal]
  - Haemorrhoids [Recovered/Resolved]
  - Erythema [Recovered/Resolved]

NARRATIVE: CASE EVENT DATE: 20191203
